FAERS Safety Report 6300334-X (Version None)
Quarter: 2009Q3

REPORT INFORMATION
  Report Type: 
  Country: None (occurrence: None)
  Receive Date: 20090804
  Receipt Date: 20090127
  Transmission Date: 20100115
  Serious: Yes (Death, Other)
  Sender: FDA-Public Use
  Company Number: UK323576

PATIENT
  Sex: Female

DRUGS (5)
  1. KINERET [Suspect]
     Indication: RHEUMATOID ARTHRITIS
     Dosage: (100 MG QD SUBCUTANEOUS)
     Route: 058
     Dates: start: 20040501, end: 20051201
  2. INFLIXIMAB [Concomitant]
  3. ADALIMUMAB [Concomitant]
  4. METHOTREXATE [Concomitant]
  5. .. [Concomitant]

REACTIONS (2)
  - COMPLETED SUICIDE [None]
  - DEPRESSION [None]
